FAERS Safety Report 7476425-7 (Version None)
Quarter: 2011Q2

REPORT INFORMATION
  Report Type: 
  Country: None (occurrence: None)
  Receive Date: 20110510
  Receipt Date: 20110510
  Transmission Date: 20111010
  Serious: No
  Sender: FDA-Public Use
  Company Number: None

PATIENT
  Age: 49 Year
  Sex: Male
  Weight: 74.5 kg

DRUGS (3)
  1. PAROXETINE HCL [Suspect]
     Indication: DEPRESSION
     Dosage: 20 MG EVERY DAY PO
     Route: 048
     Dates: start: 20100104
  2. PAROXETINE HCL [Suspect]
     Indication: ANXIETY
     Dosage: 20 MG EVERY DAY PO
     Route: 048
     Dates: start: 20100104
  3. GALANTAMINE HYDROBROMIDE [Suspect]
     Indication: COGNITIVE DISORDER
     Dosage: 4 MG BID PO
     Route: 048
     Dates: start: 20101017, end: 20110112

REACTIONS (2)
  - EJACULATION DISORDER [None]
  - ERECTILE DYSFUNCTION [None]
